FAERS Safety Report 23464606 (Version 1)
Quarter: 2024Q1

REPORT INFORMATION
  Report Type: Spontaneous
  Country: AU (occurrence: AU)
  Receive Date: 20240201
  Receipt Date: 20240201
  Transmission Date: 20240410
  Serious: Yes (Death, Other)
  Sender: FDA-Public Use
  Company Number: AU-CIPLA (EU) LIMITED-2024AU00959

PATIENT

DRUGS (5)
  1. LENALIDOMIDE [Suspect]
     Active Substance: LENALIDOMIDE
     Indication: Plasma cell myeloma
     Dosage: UNK
     Route: 065
  2. CARFILZOMIB [Suspect]
     Active Substance: CARFILZOMIB
     Indication: Plasma cell myeloma
     Dosage: 112 MILLIGRAM/SQUARE METRE, 1 WEEK
     Route: 065
  3. DEXAMETHASONE [Suspect]
     Active Substance: DEXAMETHASONE
     Indication: Plasma cell myeloma
     Dosage: UNK
     Route: 065
  4. ECULIZUMAB [Suspect]
     Active Substance: ECULIZUMAB
     Indication: Product used for unknown indication
     Dosage: UNK, 2 WEEKS
     Route: 065
  5. ECULIZUMAB [Suspect]
     Active Substance: ECULIZUMAB
     Dosage: UNK, 1 WEEKS
     Route: 065

REACTIONS (7)
  - Cardiac dysfunction [Fatal]
  - Thrombotic microangiopathy [Fatal]
  - Microangiopathic haemolytic anaemia [Recovered/Resolved]
  - Plasma cell myeloma [Unknown]
  - Respiratory syncytial virus infection [Unknown]
  - Renal failure [Unknown]
  - Influenza [Unknown]
